FAERS Safety Report 6525142-6 (Version None)
Quarter: 2009Q4

REPORT INFORMATION
  Report Type: 
  Country: None (occurrence: None)
  Receive Date: 20091228
  Receipt Date: 20091218
  Transmission Date: 20100525
  Serious: Yes (Other)
  Sender: FDA-Public Use
  Company Number: 230321J09BRA

PATIENT
  Age: 51 Year
  Sex: Female

DRUGS (10)
  1. REBIF [Suspect]
     Indication: MULTIPLE SCLEROSIS
     Dosage: 44 MCG, 3 IN 1 WEEKS
     Dates: start: 20070801, end: 20090727
  2. REBIF [Suspect]
     Indication: MULTIPLE SCLEROSIS
     Dosage: 44 MCG, 3 IN 1 WEEKS
     Dates: start: 20090816, end: 20091117
  3. OTHERS (ALL OTHER THERAPEUTIC PRODUCTS) [Concomitant]
  4. VENLAFAXINE HCL [Concomitant]
  5. AMPLICTIL (CHLORPROMAZINE) [Concomitant]
  6. ACETAMINOPHEN [Concomitant]
  7. GLIFAGE XR (METFORMIN HYDROCHLORIDE) [Concomitant]
  8. ARADOIS H (HYZAAR) [Concomitant]
  9. LIPLESS (CIPROFIBRATE) [Concomitant]
  10. LYRICA [Concomitant]

REACTIONS (3)
  - MALAISE [None]
  - PAIN [None]
  - SYSTEMIC LUPUS ERYTHEMATOSUS [None]
